FAERS Safety Report 7609565-X (Version None)
Quarter: 2011Q3

REPORT INFORMATION
  Report Type: 
  Country: None (occurrence: None)
  Receive Date: 20110714
  Receipt Date: 20110630
  Transmission Date: 20111222
  Serious: Yes (Hospitalization, Other)
  Sender: FDA-Public Use
  Company Number: US-CELGENEUS-163-21880-11060868

PATIENT
  Sex: Male
  Weight: 74.8 kg

DRUGS (5)
  1. MELPHALAN HYDROCHLORIDE [Concomitant]
     Dosage: 16 MILLIGRAM
     Route: 048
     Dates: start: 20110428, end: 20110502
  2. REVLIMID [Suspect]
     Dosage: 15 MILLIGRAM
     Route: 048
     Dates: start: 20100504, end: 20100101
  3. REVLIMID [Suspect]
     Dosage: 10 MILLIGRAM
     Route: 048
     Dates: start: 20110506, end: 20110527
  4. REVLIMID [Suspect]
     Dosage: 10 MILLIGRAM
     Route: 048
     Dates: start: 20100501, end: 20101222
  5. PREDNISONE [Concomitant]
     Dosage: 60 MILLIGRAM
     Route: 048
     Dates: start: 20110428, end: 20110502

REACTIONS (5)
  - RADIATION MUCOSITIS [None]
  - URINARY RETENTION [None]
  - PANCYTOPENIA [None]
  - DEHYDRATION [None]
  - CONDITION AGGRAVATED [None]
